FAERS Safety Report 26167481 (Version 1)
Quarter: 2025Q4

REPORT INFORMATION
  Report Type: Report from Study
  Country: CO (occurrence: CO)
  Receive Date: 20251217
  Receipt Date: 20251217
  Transmission Date: 20260118
  Serious: Yes (Hospitalization)
  Sender: ALEXION PHARMACEUTICALS
  Company Number: CO-AstraZeneca-CH-01012885A

PATIENT
  Age: 54 Year
  Sex: Male
  Weight: 72 kg

DRUGS (4)
  1. RAVULIZUMAB [Suspect]
     Active Substance: RAVULIZUMAB
     Indication: Paroxysmal nocturnal haemoglobinuria
     Dosage: 2700 MILLIGRAM, Q2W
     Dates: start: 20250710, end: 20250710
  2. RAVULIZUMAB [Suspect]
     Active Substance: RAVULIZUMAB
     Dosage: 3300 MILLIGRAM, Q8W
     Dates: start: 20250728
  3. SOLIRIS [Suspect]
     Active Substance: ECULIZUMAB
     Indication: Paroxysmal nocturnal haemoglobinuria
     Dosage: 600 MILLIGRAM, QW
     Dates: start: 20220421, end: 20220517
  4. SOLIRIS [Suspect]
     Active Substance: ECULIZUMAB
     Dosage: 900 MILLIGRAM, Q2W
     Dates: start: 20220601

REACTIONS (4)
  - Haemoglobin decreased [Unknown]
  - Pallor [Unknown]
  - Fatigue [Unknown]
  - Chronic disease decompensation [Not Recovered/Not Resolved]

NARRATIVE: CASE EVENT DATE: 20251207
